FAERS Safety Report 9235464 (Version 2)
Quarter: 2013Q3

REPORT INFORMATION
  Report Type: Other
  Country: US (occurrence: US)
  Receive Date: 20130417
  Receipt Date: 20130816
  Transmission Date: 20140515
  Serious: Yes (Death, Hospitalization)
  Sender: FDA-Public Use
  Company Number: US-SHIRE-ALL1-2013-02388

PATIENT
  Age: 79 Year
  Sex: Male

DRUGS (2)
  1. FOSRENOL [Suspect]
     Indication: NEPHROPATHY
     Dosage: 1000 MG, 3X/DAY:TID
     Route: 048
     Dates: start: 201302
  2. FOSRENOL [Suspect]
     Dosage: 1000 MG, OTHER (5 TIMES PER DAY)
     Route: 048
     Dates: start: 201206, end: 201302

REACTIONS (1)
  - Myocardial infarction [Fatal]
